FAERS Safety Report 24424402 (Version 1)
Quarter: 2024Q4

REPORT INFORMATION
  Report Type: Spontaneous
  Country: CA (occurrence: CA)
  Receive Date: 20241010
  Receipt Date: 20241010
  Transmission Date: 20250114
  Serious: Yes (Death, Hospitalization)
  Sender: AMGEN
  Company Number: CA-AMGEN-CANSP2024199084

PATIENT
  Age: 74 Year
  Sex: Male

DRUGS (5)
  1. RITUXIMAB [Suspect]
     Active Substance: RITUXIMAB
     Indication: Diffuse large B-cell lymphoma
     Dosage: UNK, SIX CYCLES
     Route: 065
  2. CYCLOPHOSPHAMIDE [Concomitant]
     Active Substance: CYCLOPHOSPHAMIDE
     Dosage: SIX CYCLES
  3. DOXORUBICIN [Concomitant]
     Active Substance: DOXORUBICIN
     Dosage: SIX CYCLES
  4. VINCRISTINE [Concomitant]
     Active Substance: VINCRISTINE
     Dosage: SIX CYCLES
  5. PREDNISOLONE [Concomitant]
     Active Substance: PREDNISOLONE
     Dosage: SIX CYCLES

REACTIONS (1)
  - Diffuse large B-cell lymphoma [Fatal]

NARRATIVE: CASE EVENT DATE: 20240701
